FAERS Safety Report 6143094-8 (Version None)
Quarter: 2009Q2

REPORT INFORMATION
  Report Type: 
  Country: None (occurrence: None)
  Receive Date: 20090403
  Receipt Date: 20090403
  Transmission Date: 20091009
  Serious: Yes (Life-Threatening)
  Sender: FDA-Public Use
  Company Number: PHHO2004CH08432

PATIENT
  Sex: Female
  Weight: 73 kg

DRUGS (4)
  1. TAMOXIFEN CITRATE [Suspect]
     Indication: BREAST CANCER
     Dosage: 20 MG, QD - 2 YEARS
     Route: 048
     Dates: start: 20020221, end: 20040221
  2. CGS 20267 T30748+ [Suspect]
     Dosage: 2.5 MG, QD - 3 YEARS
     Dates: end: 20040315
  3. BURINEX [Concomitant]
     Indication: HYPERTENSION
  4. ALLOPUR [Concomitant]
     Indication: HYPERURICAEMIA

REACTIONS (3)
  - CHEST PAIN [None]
  - HAEMOPTYSIS [None]
  - PULMONARY EMBOLISM [None]
